FAERS Safety Report 19199955 (Version 2)
Quarter: 2021Q3

REPORT INFORMATION
  Report Type: Spontaneous
  Country: IT (occurrence: IT)
  Receive Date: 20210430
  Receipt Date: 20210930
  Transmission Date: 20211014
  Serious: Yes (Hospitalization, Other)
  Sender: FDA-Public Use
  Company Number: IT-MYLANLABS-2021M1024655

PATIENT
  Age: 25 Year
  Sex: Female

DRUGS (6)
  1. PREDNISONE. [Concomitant]
     Active Substance: PREDNISONE
     Dosage: 2.5 MILLIGRAM, Q5D
  2. ADALIMUMAB [Suspect]
     Active Substance: ADALIMUMAB
     Indication: PSORIATIC ARTHROPATHY
     Dosage: FOR 10 YEARS
     Route: 058
  3. ADALIMUMAB [Suspect]
     Active Substance: ADALIMUMAB
     Indication: AUTOIMMUNE THYROIDITIS
     Dosage: UNK
     Route: 058
  4. PREDNISONE. [Concomitant]
     Active Substance: PREDNISONE
     Indication: SKIN LESION
     Dosage: 15 MILLIGRAM, QD
  5. IBUPROFEN. [Concomitant]
     Active Substance: IBUPROFEN
     Indication: SKIN LESION
     Dosage: 600 MILLIGRAM, BID
  6. PREDNISONE. [Concomitant]
     Active Substance: PREDNISONE
     Dosage: 2 WEEKS A SCALAR

REACTIONS (11)
  - Pain [Unknown]
  - Muscular weakness [Unknown]
  - Proteinuria [Recovering/Resolving]
  - Neuralgia [Recovering/Resolving]
  - Haematuria [Unknown]
  - Arthralgia [Recovered/Resolved]
  - Dysaesthesia [Unknown]
  - Polyneuropathy [Unknown]
  - Purpura [Recovered/Resolved]
  - Oedema peripheral [Unknown]
  - Pneumonia [Unknown]
